FAERS Safety Report 9900608 (Version 1)
Quarter: 2014Q1

REPORT INFORMATION
  Report Type: Spontaneous
  Country: US (occurrence: US)
  Receive Date: 20140217
  Receipt Date: 20140217
  Transmission Date: 20141002
  Serious: No
  Sender: FDA-Public Use
  Company Number: US-BIOGENIDEC-2014BI014088

PATIENT
  Age: 41 Year
  Sex: Male

DRUGS (7)
  1. AVONEX [Suspect]
     Indication: MULTIPLE SCLEROSIS
     Route: 030
     Dates: start: 20110108
  2. PHENYTOIN [Concomitant]
     Indication: CONVULSION
     Route: 048
  3. TRAZODONE [Concomitant]
     Indication: DEPRESSION
     Route: 048
  4. ZONISAMIDE [Concomitant]
     Indication: CONVULSION
     Route: 048
  5. LEVETIRACETAM [Concomitant]
     Indication: CONVULSION
     Route: 048
     Dates: start: 2011
  6. BUPROPION [Concomitant]
     Indication: DEPRESSION
     Route: 048
  7. CYCLOBENZAPRINE [Concomitant]
     Indication: NERVE ROOT COMPRESSION
     Route: 048

REACTIONS (2)
  - Aggression [Not Recovered/Not Resolved]
  - Anxiety [Not Recovered/Not Resolved]
